FAERS Safety Report 8935436 (Version 1)
Quarter: 2012Q4

REPORT INFORMATION
  Report Type: Spontaneous
  Country: US (occurrence: None)
  Receive Date: 20121128
  Receipt Date: 20121128
  Transmission Date: 20130627
  Serious: Yes (Hospitalization)
  Sender: FDA-Public Use
  Company Number: None

PATIENT
  Age: 50 Year
  Sex: Male
  Weight: 147 kg

DRUGS (19)
  1. MEDI FAT BURNER [Suspect]
     Indication: WEIGHT CONTROL
     Dosage: 2 TABS DAILY PO
     Route: 048
  2. PRADAXA [Suspect]
     Indication: ATRIAL FIBRILLATION
     Dosage: 150MG BID PO
     Route: 048
  3. PRADAXA [Suspect]
     Indication: ATRIAL FLUTTER
     Dosage: 150MG BID PO
     Route: 048
  4. MEDI INNER BALANCE [Suspect]
     Indication: WEIGHT CONTROL
     Dosage: 2 TABS DAILY PO
     Route: 048
  5. NEURONTIN [Concomitant]
  6. GEMFIBROZIL [Concomitant]
  7. DITROPAN [Concomitant]
  8. LAMICTAL [Concomitant]
  9. PLETAL [Concomitant]
  10. LASIX [Concomitant]
  11. LISINOPRIL [Concomitant]
  12. OMEPRAZOLE [Concomitant]
  13. PRAVASTATIN [Concomitant]
  14. FLOMAX [Concomitant]
  15. ABILIFY [Concomitant]
  16. DEPAKOT [Concomitant]
  17. PAXIL [Concomitant]
  18. LANTUS [Concomitant]
  19. NOVOLOG [Concomitant]

REACTIONS (5)
  - Nausea [None]
  - Vomiting [None]
  - Hyponatraemia [None]
  - Adverse drug reaction [None]
  - Treatment noncompliance [None]
